FAERS Safety Report 10475901 (Version 1)
Quarter: 2014Q3

REPORT INFORMATION
  Report Type: Spontaneous
  Country: DE (occurrence: DE)
  Receive Date: 20140925
  Receipt Date: 20140925
  Transmission Date: 20150326
  Serious: Yes (Other)
  Sender: FDA-Public Use
  Company Number: DE-TEVA-510341GER

PATIENT
  Age: 30 Year
  Sex: Female

DRUGS (2)
  1. CYTARABINE. [Suspect]
     Active Substance: CYTARABINE
     Indication: ACUTE MYELOID LEUKAEMIA
     Dosage: DOSE: HIGH-DOSE.
     Route: 065
  2. MITOXANTRONE [Suspect]
     Active Substance: MITOXANTRONE HYDROCHLORIDE
     Indication: ACUTE MYELOID LEUKAEMIA
     Dosage: DOSE: HIGH-DOSE.
     Route: 065

REACTIONS (5)
  - Bacterial sepsis [Recovered/Resolved]
  - Febrile neutropenia [Recovered/Resolved]
  - Escherichia infection [Recovered/Resolved]
  - Neutropenia [Recovered/Resolved]
  - Necrotising fasciitis [Recovered/Resolved]
